FAERS Safety Report 5704149-2 (Version None)
Quarter: 2008Q2

REPORT INFORMATION
  Report Type: 
  Country: None (occurrence: None)
  Receive Date: 20080414
  Receipt Date: 20080414
  Transmission Date: 20081010
  Serious: Yes (Life-Threatening, Hospitalization)
  Sender: FDA-Public Use
  Company Number: None

PATIENT
  Age: 62 Year
  Sex: Male
  Weight: 129.2752 kg

DRUGS (1)
  1. HEPARIN [Suspect]
     Indication: ANTICOAGULANT THERAPY
     Dates: start: 20061016, end: 20061218

REACTIONS (1)
  - ADVERSE DRUG REACTION [None]
